FAERS Safety Report 5528728-0 (Version None)
Quarter: 2007Q4

REPORT INFORMATION
  Report Type: 
  Country: None (occurrence: None)
  Receive Date: 20071113
  Receipt Date: 20070917
  Transmission Date: 20080405
  Serious: Yes (Other)
  Sender: FDA-Public Use
  Company Number: 200712596US

PATIENT
  Age: 70 Year
  Sex: Female
  Weight: 76.36 kg

DRUGS (11)
  1. APIDRA [Suspect]
     Indication: TYPE 2 DIABETES MELLITUS
     Dosage: 1-5 SLIDING SCALE U AC
     Dates: start: 20060101
  2. OPTICLIK GREY [Suspect]
     Indication: TYPE 2 DIABETES MELLITUS
     Dates: start: 20060101
  3. INSULIN GLARGINA (LANTUS) [Suspect]
     Indication: TYPE 2 DIABETES MELLITUS
     Dosage: 29 U HS
     Dates: start: 20060101
  4. LANTUS [Suspect]
     Indication: TYPE 2 DIABETES MELLITUS
     Dosage: 28 U QPM
  5. OPTICLIK GREY [Suspect]
     Indication: TYPE 2 DIABETES MELLITUS
     Dates: start: 20060101
  6. HUMALOG [Concomitant]
  7. METFORMIN HCL [Concomitant]
  8. LORATADINE [Concomitant]
  9. PREVACID [Concomitant]
  10. ASCORBIC ACID, TOCOPHEROL, RETINOL (OCUVITE /01053801/) [Concomitant]
  11. PIOGLITAZONE [Concomitant]

REACTIONS (5)
  - BLOOD GLUCOSE INCREASED [None]
  - HOT FLUSH [None]
  - HYPERHIDROSIS [None]
  - HYPOGLYCAEMIA [None]
  - WRONG DRUG ADMINISTERED [None]
